FAERS Safety Report 6410844-2 (Version None)
Quarter: 2009Q4

REPORT INFORMATION
  Report Type: 
  Country: None (occurrence: None)
  Receive Date: 20091022
  Receipt Date: 20091009
  Transmission Date: 20100525
  Serious: Yes (Disabling)
  Sender: FDA-Public Use
  Company Number: PHHY2009PT43975

PATIENT
  Sex: Female

DRUGS (7)
  1. ACLASTA [Suspect]
     Indication: OSTEOPOROSIS
     Dosage: UNK
     Route: 042
     Dates: start: 20090721
  2. CALCIUM CARBONATE W/COLECALCIFEROL [Concomitant]
     Indication: OSTEOPOROSIS
     Dosage: 1500 MG + 400 IU, BID
  3. LANSOPRAZOLE [Concomitant]
     Dosage: UNK, QD
  4. GLUCOSAMINE [Concomitant]
     Indication: OSTEOARTHRITIS
     Dosage: 250 MG, Q48H
  5. MAGNESIUM ASPARTATE [Concomitant]
     Indication: OSTEOARTHRITIS
     Dosage: UNK, Q48H
     Dates: end: 20090901
  6. TRIMETAZIDINE DIHYDROCHLORIDE [Concomitant]
     Dosage: 20 MG, BID
     Route: 048
  7. BENDAZAC LYSINATE [Concomitant]
     Indication: CATARACT
     Route: 047

REACTIONS (8)
  - ARTHRALGIA [None]
  - CONFUSIONAL STATE [None]
  - ERYTHEMA [None]
  - GAIT DISTURBANCE [None]
  - HEADACHE [None]
  - PAIN IN EXTREMITY [None]
  - RASH [None]
  - TENDONITIS [None]
